FAERS Safety Report 10185812 (Version 1)
Quarter: 2014Q2

REPORT INFORMATION
  Report Type: Spontaneous
  Country: US (occurrence: US)
  Receive Date: 20140521
  Receipt Date: 20140521
  Transmission Date: 20141212
  Serious: Yes (Other)
  Sender: FDA-Public Use
  Company Number: US-TEVA-482797USA

PATIENT
  Age: 60 Year
  Sex: Female

DRUGS (5)
  1. DIVALPROEX [Suspect]
     Indication: DEPRESSION
     Dosage: 1000 MILLIGRAM DAILY;
  2. BUPROPION [Concomitant]
  3. LEVOTHYROXINE [Concomitant]
  4. HORMONE REPLACEMENT [Concomitant]
  5. VITAMINS [Concomitant]

REACTIONS (3)
  - Coeliac disease [Unknown]
  - Eye movement disorder [Unknown]
  - Tremor [Unknown]
